FAERS Safety Report 8543788-0 (Version None)
Quarter: 2012Q3

REPORT INFORMATION
  Report Type: 
  Country: None (occurrence: None)
  Receive Date: 20120727
  Receipt Date: 20120719
  Transmission Date: 20120928
  Serious: Yes (Hospitalization, Other)
  Sender: FDA-Public Use
  Company Number: DE-PFIZER INC-2012165745

PATIENT
  Age: 31 Year
  Sex: Female
  Weight: 59 kg

DRUGS (2)
  1. VENLAFAXINE HCL [Suspect]
     Indication: ANXIETY
     Dosage: 37.5 MG, 1X/DAY
     Dates: start: 20100101
  2. CEFUROXIME [Interacting]
     Indication: ARTHROPOD BITE
     Dosage: 500 MG, 2X/DAY
     Dates: start: 20120709, end: 20120710

REACTIONS (8)
  - CIRCULATORY COLLAPSE [None]
  - VERTIGO [None]
  - DEHYDRATION [None]
  - DIARRHOEA [None]
  - DRUG INTERACTION [None]
  - SYNCOPE [None]
  - NAUSEA [None]
  - ARTHROPOD BITE [None]
